FAERS Safety Report 8790178 (Version 1)
Quarter: 2012Q4

REPORT INFORMATION
  Report Type: 
  Country: US (occurrence: US)
  Receive Date: 20120917
  Receipt Date: 20120917
  Transmission Date: 20130627
  Serious: Yes (Death)
  Sender: FDA-Public Use
  Company Number: US-NAPPMUNDI-USA-2012-0092789

PATIENT
  Age: 62 Year
  Sex: Male

DRUGS (2)
  1. OXYCONTIN TABLETS [Suspect]
     Indication: PRODUCT USED FOR UNKNOWN INDICATION
  2. NALBUPHINE [Suspect]
     Indication: PRODUCT USED FOR UNKNOWN INDICATION

REACTIONS (2)
  - Cardiovascular disorder [Fatal]
  - Hypertension [Fatal]
